FAERS Safety Report 6125426-X (Version None)
Quarter: 2009Q1

REPORT INFORMATION
  Report Type: 
  Country: None (occurrence: None)
  Receive Date: 20090320
  Receipt Date: 20090316
  Transmission Date: 20090719
  Serious: Yes (Other)
  Sender: FDA-Public Use
  Company Number: US-ABBOTT-09P-163-0562941-00

PATIENT
  Age: 28 Year
  Sex: Female

DRUGS (4)
  1. KALETRA [Suspect]
     Indication: HIV INFECTION
     Dosage: 800/200MG TOTAL DAILY DOSE
     Route: 048
     Dates: start: 20080101
  2. FOSAMPRENAVIR CALCIUM [Suspect]
     Indication: HIV INFECTION
     Dosage: 2800 MG TOTAL DAILY DOSE
  3. LAMIVUDINE + ZIDOVUDINE [Suspect]
     Indication: HIV INFECTION
     Dosage: 300/600 MG TOTAL DAILY DOSE
     Dates: start: 20080101
  4. TRUVADA [Suspect]
     Indication: HIV INFECTION
     Dosage: 200/300 MG TOTAL DAILY DOSE

REACTIONS (2)
  - DRUG EXPOSURE DURING PREGNANCY [None]
  - ECTOPIC PREGNANCY [None]
